FAERS Safety Report 5464949-3 (Version None)
Quarter: 2007Q3

REPORT INFORMATION
  Report Type: 
  Country: None (occurrence: None)
  Receive Date: 20070921
  Receipt Date: 20070917
  Transmission Date: 20080115
  Serious: Yes (Life-Threatening, Hospitalization)
  Sender: FDA-Public Use
  Company Number: YU-PFIZER INC-2007077030

PATIENT
  Sex: Female
  Weight: 73 kg

DRUGS (1)
  1. CELECOXIB [Suspect]
     Indication: OSTEOARTHRITIS
     Route: 048
     Dates: start: 20070828, end: 20070913

REACTIONS (1)
  - CEREBRAL HAEMORRHAGE [None]
